FAERS Safety Report 8819617 (Version 1)
Quarter: 2012Q4

REPORT INFORMATION
  Report Type: 
  Country: HU (occurrence: HU)
  Receive Date: 20121001
  Receipt Date: 20121001
  Transmission Date: 20130627
  Serious: Yes (Other)
  Sender: FDA-Public Use
  Company Number: HU-AMGEN-HUNSP2012060891

PATIENT
  Age: 69 Year
  Sex: Male
  Weight: 80 kg

DRUGS (2)
  1. ENBREL [Suspect]
     Indication: PSORIASIS
     Dosage: UNK
     Dates: start: 2008
  2. ENBREL [Suspect]
     Dosage: 50 mg, weekly
     Dates: start: 20090204, end: 20110120

REACTIONS (4)
  - Central nervous system lesion [Unknown]
  - Gait disturbance [Unknown]
  - Nervous system disorder [Unknown]
  - Demyelination [Unknown]
